FAERS Safety Report 9509627 (Version 2)
Quarter: 2013Q3

REPORT INFORMATION
  Report Type: Report from Study
  Country: JP (occurrence: JP)
  Receive Date: 20130909
  Receipt Date: 20130920
  Transmission Date: 20140515
  Serious: Yes (Hospitalization)
  Sender: FDA-Public Use
  Company Number: JP-TEVA-430661USA

PATIENT
  Age: 16 Year
  Sex: Female
  Weight: 56 kg

DRUGS (7)
  1. NOBELZIN [Suspect]
     Indication: HEPATO-LENTICULAR DEGENERATION
     Dosage: 100 MILLIGRAM DAILY;
     Route: 048
     Dates: start: 20080804, end: 20090331
  2. NOBELZIN [Suspect]
     Dosage: 150 MILLIGRAM DAILY;
     Route: 048
     Dates: start: 20090401, end: 20130803
  3. METALCAPTASE [Concomitant]
     Dosage: 600 MILLIGRAM DAILY;
     Route: 048
     Dates: start: 20080804, end: 20090401
  4. PYDOXAL [Concomitant]
     Dosage: 20 MILLIGRAM DAILY;
     Dates: start: 20080804, end: 20090401
  5. TOMIRON [Concomitant]
     Dosage: 300 MILLIGRAM DAILY;
     Route: 048
     Dates: start: 20091015, end: 20091017
  6. TOMIRON [Concomitant]
     Dosage: 300 MILLIGRAM DAILY;
     Route: 048
     Dates: start: 20091110, end: 20091113
  7. TRANSAMIN [Concomitant]
     Dosage: 750 MILLIGRAM DAILY;
     Route: 048
     Dates: start: 20091110, end: 20091113

REACTIONS (1)
  - Appendicitis [Recovered/Resolved]
